FAERS Safety Report 22084034 (Version 1)
Quarter: 2023Q1

REPORT INFORMATION
  Report Type: Report from Study
  Country: JP (occurrence: JP)
  Receive Date: 20230310
  Receipt Date: 20230310
  Transmission Date: 20230418
  Serious: Yes (Other)
  Sender: FDA-Public Use
  Company Number: JP-Recordati Rare Diseases Inc.-JP-R13005-19-00308

PATIENT
  Age: 0 Year
  Sex: Female
  Weight: 1.068 kg

DRUGS (6)
  1. NEOPROFEN [Suspect]
     Active Substance: IBUPROFEN LYSINE
     Indication: Patent ductus arteriosus
     Dosage: 9.2 MILLIGRAM, QD
     Route: 042
     Dates: start: 20190614, end: 20190614
  2. NEOPROFEN [Suspect]
     Active Substance: IBUPROFEN LYSINE
     Dosage: 4.7 MILLIGRAM, QD
     Route: 042
     Dates: start: 20190615, end: 20190615
  3. NEOPROFEN [Suspect]
     Active Substance: IBUPROFEN LYSINE
     Dosage: 4.7 MILLIGRAM, QD
     Route: 042
     Dates: start: 20190616, end: 20190616
  4. CAFFEINE [Concomitant]
     Active Substance: CAFFEINE
     Indication: Apnoeic attack
     Dosage: UNK
     Route: 042
     Dates: start: 20190606, end: 20190616
  5. CAFFEINE [Concomitant]
     Active Substance: CAFFEINE
     Dosage: UNK
     Route: 048
     Dates: start: 20190617, end: 20190730
  6. HERBALS [Concomitant]
     Active Substance: HERBALS
     Indication: Constipation
     Dosage: UNK
     Route: 048
     Dates: start: 20190609, end: 20190806

REACTIONS (1)
  - Hypoxia [Recovered/Resolved]

NARRATIVE: CASE EVENT DATE: 20190616
